FAERS Safety Report 23446998 (Version 1)
Quarter: 2024Q1

REPORT INFORMATION
  Report Type: Spontaneous
  Country: US (occurrence: US)
  Receive Date: 20240126
  Receipt Date: 20240126
  Transmission Date: 20240409
  Serious: Yes (Other)
  Sender: FDA-Public Use
  Company Number: US-KEDRION-008649

PATIENT
  Age: 57 Year
  Sex: Male

DRUGS (3)
  1. HUMAN IMMUNOGLOBULIN G [Suspect]
     Active Substance: HUMAN IMMUNOGLOBULIN G
     Indication: Heparin-induced thrombocytopenia
     Dosage: DOSAGE: 1 G/KG BEFORE AND AN ADDITIONAL DOSE DURING SURGERY
     Route: 042
  2. HUMAN IMMUNOGLOBULIN G [Suspect]
     Active Substance: HUMAN IMMUNOGLOBULIN G
     Indication: Heparin-induced thrombocytopenia
     Dosage: DOSAGE: 0.5 G/KG FOR 4 DOSES AFTER SURGERY
     Route: 042
  3. ARGATROBAN [Concomitant]
     Active Substance: ARGATROBAN

REACTIONS (5)
  - Heparin-induced thrombocytopenia [Not Recovered/Not Resolved]
  - Therapy non-responder [Recovered/Resolved with Sequelae]
  - Hepatic artery thrombosis [Not Recovered/Not Resolved]
  - Disease progression [Not Recovered/Not Resolved]
  - Off label use [Recovered/Resolved with Sequelae]
